FAERS Safety Report 4641652-0 (Version None)
Quarter: 2005Q2

REPORT INFORMATION
  Report Type: 
  Country: None (occurrence: None)
  Receive Date: 20050421
  Receipt Date: 20050329
  Transmission Date: 20051028
  Serious: Yes (Other)
  Sender: FDA-Public Use
  Company Number: FR-ABBOTT-05P-056-0295634-00

PATIENT
  Age: 73 Year
  Sex: Female

DRUGS (6)
  1. LIPANTHYL TABLETS [Suspect]
     Indication: HYPERCHOLESTEROLAEMIA
     Route: 048
     Dates: start: 20050125, end: 20050126
  2. OXCARBAZEPINE [Interacting]
     Indication: DRUG USE FOR UNKNOWN INDICATION
     Dates: end: 20050126
  3. FLUOXETINE HCL [Concomitant]
     Indication: DRUG USE FOR UNKNOWN INDICATION
  4. CLONAZEPAM [Concomitant]
     Indication: DRUG USE FOR UNKNOWN INDICATION
  5. PIRIBEDIL [Concomitant]
     Indication: DRUG USE FOR UNKNOWN INDICATION
  6. TRAMADOL HCL [Concomitant]
     Indication: DRUG USE FOR UNKNOWN INDICATION

REACTIONS (7)
  - ABDOMINAL PAIN UPPER [None]
  - DRUG INTERACTION [None]
  - HEPATITIS [None]
  - NAUSEA [None]
  - SENSATION OF HEAVINESS [None]
  - STOMACH DISCOMFORT [None]
  - VOMITING [None]
